FAERS Safety Report 7323978-5 (Version None)
Quarter: 2011Q1

REPORT INFORMATION
  Report Type: 
  Country: None (occurrence: None)
  Receive Date: 20110301
  Receipt Date: 20110223
  Transmission Date: 20110831
  Serious: Yes (Other)
  Sender: FDA-Public Use
  Company Number: US-BRISTOL-MYERS SQUIBB COMPANY-15010127

PATIENT
  Sex: Female

DRUGS (1)
  1. COUMADIN [Suspect]
     Indication: ATRIAL FIBRILLATION

REACTIONS (5)
  - FALL [None]
  - PAIN IN EXTREMITY [None]
  - CONSTIPATION [None]
  - URINARY TRACT INFECTION [None]
  - UPPER LIMB FRACTURE [None]
